FAERS Safety Report 25544344 (Version 1)
Quarter: 2025Q3

REPORT INFORMATION
  Report Type: Spontaneous
  Country: US (occurrence: None)
  Receive Date: 20250711
  Receipt Date: 20250711
  Transmission Date: 20251021
  Serious: Yes (Hospitalization)
  Sender: FDA-CTU
  Company Number: None

PATIENT
  Sex: Male

DRUGS (11)
  1. LENALIDOMIDE [Suspect]
     Active Substance: LENALIDOMIDE
     Indication: Follicular lymphoma
     Route: 048
     Dates: start: 20250416
  2. ASPIRIN [Concomitant]
     Active Substance: ASPIRIN
  3. BACLOFEN [Concomitant]
     Active Substance: BACLOFEN
  4. ELIQUIS [Concomitant]
     Active Substance: APIXABAN
  5. KP VITAMIN D [Concomitant]
  6. LENALIDOMIDE [Concomitant]
     Active Substance: LENALIDOMIDE
  7. LORATADINE [Concomitant]
     Active Substance: LORATADINE
  8. MULTI-VITAMI CHW GUMMIES [Concomitant]
  9. RITUXAN [Concomitant]
     Active Substance: RITUXIMAB
  10. TRAMADOLHCL [Concomitant]
  11. VITAMIN B12 [Concomitant]
     Active Substance: CYANOCOBALAMIN

REACTIONS (4)
  - Fall [None]
  - Head injury [None]
  - Cerebrovascular accident [None]
  - Intentional dose omission [None]
